FAERS Safety Report 7985547-3 (Version None)
Quarter: 2011Q4

REPORT INFORMATION
  Report Type: 
  Country: None (occurrence: None)
  Receive Date: 20111216
  Receipt Date: 20111208
  Transmission Date: 20120403
  Serious: Yes (Hospitalization)
  Sender: FDA-Public Use
  Company Number: US-JNJFOC-20111205747

PATIENT
  Sex: Female
  Weight: 74.39 kg

DRUGS (4)
  1. LEVAQUIN [Suspect]
     Indication: VIRAL INFECTION
     Route: 048
     Dates: start: 20111123, end: 20111201
  2. PREDNISONE [Concomitant]
     Indication: VIRAL INFECTION
     Route: 065
  3. REMICADE [Concomitant]
     Indication: RHEUMATOID ARTHRITIS
     Route: 042
     Dates: start: 20100401
  4. UNKNOWN MEDICATION [Concomitant]
     Indication: VIRAL INFECTION
     Route: 065

REACTIONS (3)
  - OFF LABEL USE [None]
  - PNEUMONIA [None]
  - VITAMIN B12 DECREASED [None]
